FAERS Safety Report 4971234-2 (Version None)
Quarter: 2006Q2

REPORT INFORMATION
  Report Type: 
  Country: None (occurrence: None)
  Receive Date: 20060413
  Receipt Date: 20060104
  Transmission Date: 20061013
  Serious: Yes (Hospitalization)
  Sender: FDA-Public Use
  Company Number: US-MERCK-0601USA00640

PATIENT
  Age: 71 Year
  Sex: Female
  Weight: 77 kg

DRUGS (7)
  1. VIOXX [Suspect]
     Indication: ARTHRITIS
     Route: 048
     Dates: start: 20030508, end: 20040220
  2. ELAVIL [Concomitant]
     Route: 065
  3. GLUCOPHAGE [Concomitant]
     Route: 065
  4. GLYBURIDE [Concomitant]
     Route: 065
  5. PROTONIX [Concomitant]
     Route: 065
  6. VASOTEC [Concomitant]
     Route: 065
  7. ZYRTEC [Concomitant]
     Route: 065

REACTIONS (3)
  - CEREBRAL ARTERY OCCLUSION [None]
  - GASTRITIS EROSIVE [None]
  - PAIN IN EXTREMITY [None]
